FAERS Safety Report 7039023-5 (Version None)
Quarter: 2010Q4

REPORT INFORMATION
  Report Type: 
  Country: None (occurrence: None)
  Receive Date: 20101012
  Receipt Date: 20100928
  Transmission Date: 20110411
  Serious: Yes (Other)
  Sender: FDA-Public Use
  Company Number: JP-EISAI INC.-E3810-03863-SPO-JP

PATIENT
  Age: 88 Year
  Sex: Male

DRUGS (6)
  1. PARIET (RABEPRAZOLE) [Suspect]
     Indication: REFLUX OESOPHAGITIS
     Route: 048
     Dates: start: 20091202, end: 20100531
  2. TAMSULOSIN HCL [Concomitant]
     Route: 048
  3. ADALAT CC [Concomitant]
     Route: 048
  4. DEPAS [Concomitant]
     Route: 048
  5. MARZULENE S [Concomitant]
     Route: 048
  6. ASPIRIN [Concomitant]
     Route: 048

REACTIONS (1)
  - HYPONATRAEMIA [None]
